FAERS Safety Report 7358219-6 (Version None)
Quarter: 2011Q1

REPORT INFORMATION
  Report Type: 
  Country: None (occurrence: None)
  Receive Date: 20110317
  Receipt Date: 20110311
  Transmission Date: 20110831
  Serious: Yes (Hospitalization, Other)
  Sender: FDA-Public Use
  Company Number: US-ABBOTT-11P-163-0711493-00

PATIENT
  Age: 50 Year
  Sex: Female
  Weight: 63.56 kg

DRUGS (9)
  1. VITAMIN B-12 [Concomitant]
     Indication: PRODUCT USED FOR UNKNOWN INDICATION
     Route: 050
  2. IRON [Concomitant]
     Indication: MINERAL SUPPLEMENTATION
  3. HUMIRA [Suspect]
     Indication: CROHN'S DISEASE
     Route: 058
     Dates: start: 20100301, end: 20100401
  4. HUMIRA [Suspect]
     Route: 058
     Dates: start: 20100901
  5. VITAMIN D [Concomitant]
     Indication: VITAMIN SUPPLEMENTATION
  6. HUMIRA [Suspect]
     Dosage: 80 MG ONCE
     Route: 058
     Dates: start: 20100401, end: 20100401
  7. CELEXA [Concomitant]
     Indication: DEPRESSION
     Route: 048
  8. CALCIUM [Concomitant]
     Indication: MINERAL SUPPLEMENTATION
  9. MULTI-VITAMIN [Concomitant]
     Indication: VITAMIN SUPPLEMENTATION

REACTIONS (13)
  - INTESTINAL OBSTRUCTION [None]
  - GASTROINTESTINAL INFECTION [None]
  - DEPRESSION [None]
  - LARGE INTESTINE PERFORATION [None]
  - INJECTION SITE ERYTHEMA [None]
  - INTESTINAL DILATATION [None]
  - ABDOMINAL PAIN [None]
  - FAECAL INCONTINENCE [None]
  - GASTROINTESTINAL DISORDER [None]
  - WHITE BLOOD CELL COUNT INCREASED [None]
  - DIARRHOEA [None]
  - BLOOD POTASSIUM DECREASED [None]
  - INJECTION SITE PRURITUS [None]
